FAERS Safety Report 10053676 (Version 1)
Quarter: 2014Q2

REPORT INFORMATION
  Report Type: Report from Study
  Country: PL (occurrence: PL)
  Receive Date: 20140402
  Receipt Date: 20140402
  Transmission Date: 20141212
  Serious: Yes (Death)
  Sender: FDA-Public Use
  Company Number: PL-BAXTER-2014BAX016034

PATIENT
  Sex: 0

DRUGS (11)
  1. SUPRANE [Suspect]
     Indication: MAINTENANCE OF ANAESTHESIA
     Dosage: 3-9%
     Route: 055
  2. LORAZEPAM [Suspect]
     Indication: PRODUCT USED FOR UNKNOWN INDICATION
     Dosage: 50 UG/KG -1
     Route: 065
  3. RANITIDINE [Suspect]
     Indication: PRODUCT USED FOR UNKNOWN INDICATION
     Route: 065
  4. METOPROLOL [Suspect]
     Indication: PRODUCT USED FOR UNKNOWN INDICATION
     Route: 065
  5. FENTANYL [Suspect]
     Indication: INDUCTION OF ANAESTHESIA
     Route: 042
  6. FENTANYL [Suspect]
     Indication: HYPOTONIA
     Dosage: UP TO A TOTAL OF 20-30 UG/KG-1.
     Route: 042
  7. FENTANYL [Suspect]
     Indication: ANALGESIC THERAPY
  8. ETOMIDATE [Suspect]
     Indication: INDUCTION OF ANAESTHESIA
     Route: 042
  9. ETOMIDATE [Suspect]
     Indication: HYPOTONIA
  10. VECURONIUM BROMIDE [Suspect]
     Indication: INDUCTION OF ANAESTHESIA
     Route: 042
  11. VECURONIUM BROMIDE [Suspect]
     Indication: HYPOTONIA
     Route: 042

REACTIONS (1)
  - Death [Fatal]
